FAERS Safety Report 23263931 (Version 6)
Quarter: 2024Q3

REPORT INFORMATION
  Report Type: Spontaneous
  Country: US (occurrence: US)
  Receive Date: 20231205
  Receipt Date: 20240918
  Transmission Date: 20241017
  Serious: Yes (Hospitalization)
  Sender: SANOFI AVENTIS
  Company Number: US-SA-SAC20231201001367

PATIENT
  Age: 52 Year
  Sex: Female

DRUGS (3)
  1. DUPIXENT [Suspect]
     Active Substance: DUPILUMAB
     Indication: Asthma
     Dosage: 600 MG, 1X
     Route: 058
     Dates: start: 20231009, end: 20231009
  2. DUPIXENT [Suspect]
     Active Substance: DUPILUMAB
     Dosage: 300 MG, QOW
     Route: 058
     Dates: start: 202310
  3. VERZENIO [Suspect]
     Active Substance: ABEMACICLIB
     Dosage: UNK

REACTIONS (9)
  - Oxygen saturation decreased [Recovering/Resolving]
  - Breast reconstruction [Unknown]
  - Surgery [Unknown]
  - Alopecia [Unknown]
  - Illness [Recovering/Resolving]
  - Jaw disorder [Unknown]
  - Glossodynia [Not Recovered/Not Resolved]
  - Aphonia [Unknown]
  - Injection site pain [Unknown]

NARRATIVE: CASE EVENT DATE: 20231101
